FAERS Safety Report 8776330 (Version 2)
Quarter: 2012Q4

REPORT INFORMATION
  Report Type: 
  Country: US (occurrence: US)
  Receive Date: 20120910
  Receipt Date: 20121109
  Transmission Date: 20130627
  Serious: No
  Sender: FDA-Public Use
  Company Number: US-PFIZER INC-2012220479

PATIENT
  Age: 50 Year
  Sex: Female
  Weight: 72.6 kg

DRUGS (6)
  1. CELEBREX [Suspect]
     Dosage: UNK
  2. MOTRIN [Suspect]
     Dosage: UNK
  3. XANAX [Suspect]
     Dosage: UNK
  4. HYDROCHLOROTHIAZIDE [Suspect]
     Dosage: UNK
  5. ULTRAM [Suspect]
     Dosage: UNK
  6. DARVOCET A500 [Suspect]
     Dosage: UNK

REACTIONS (1)
  - Drug hypersensitivity [Unknown]
